FAERS Safety Report 24692788 (Version 3)
Quarter: 2025Q1

REPORT INFORMATION
  Report Type: Spontaneous
  Country: US (occurrence: US)
  Receive Date: 20241203
  Receipt Date: 20250227
  Transmission Date: 20250409
  Serious: Yes (Other)
  Sender: ELI LILLY AND COMPANY
  Company Number: US-ELI_LILLY_AND_COMPANY-US202411015109

PATIENT
  Age: 68 Year
  Sex: Female

DRUGS (1)
  1. TRULICITY [Suspect]
     Active Substance: DULAGLUTIDE
     Indication: Product used for unknown indication
     Dosage: 0.75 MG, WEEKLY (1/W) (EVERY 7 DAYS)
     Route: 058
     Dates: start: 20240617, end: 20240821

REACTIONS (11)
  - Plasma cell myeloma [Unknown]
  - Hypergammaglobulinaemia benign monoclonal [Unknown]
  - Thrombosis [Unknown]
  - Pancreatitis [Recovered/Resolved]
  - Gastric ulcer [Unknown]
  - Lung hyperinflation [Unknown]
  - Ascites [Unknown]
  - Musculoskeletal chest pain [Unknown]
  - Pneumonia [Unknown]
  - Amylase increased [Unknown]
  - Lipase increased [Unknown]

NARRATIVE: CASE EVENT DATE: 20240705
